FAERS Safety Report 26136776 (Version 1)
Quarter: 2025Q4

REPORT INFORMATION
  Report Type: Report from Study
  Country: US (occurrence: US)
  Receive Date: 20251209
  Receipt Date: 20251209
  Transmission Date: 20260117
  Serious: Yes (Other)
  Sender: TEVA
  Company Number: US-TEVA-VS-3399463

PATIENT
  Age: 38 Year
  Sex: Female

DRUGS (1)
  1. AUSTEDO [Suspect]
     Active Substance: DEUTETRABENAZINE
     Indication: Tardive dyskinesia
     Route: 048
     Dates: start: 20250711, end: 20251001

REACTIONS (5)
  - Dyskinesia [Recovering/Resolving]
  - Nasal disorder [Recovering/Resolving]
  - Self-injurious ideation [Recovering/Resolving]
  - Epistaxis [Recovering/Resolving]
  - Somnolence [Recovering/Resolving]

NARRATIVE: CASE EVENT DATE: 20250101
